FAERS Safety Report 22535012 (Version 1)
Quarter: 2023Q2

REPORT INFORMATION
  Report Type: Spontaneous
  Country: US (occurrence: US)
  Receive Date: 20230608
  Receipt Date: 20230608
  Transmission Date: 20230722
  Serious: Yes (Death)
  Sender: FDA-Public Use
  Company Number: US-SECURA BIO, INC.-2023-SECUR-US000064

PATIENT

DRUGS (1)
  1. COPIKTRA [Suspect]
     Active Substance: DUVELISIB
     Indication: Hodgkin^s disease
     Dosage: 25 MG, BID
     Route: 048
     Dates: start: 202302

REACTIONS (2)
  - Death [Fatal]
  - Product use in unapproved indication [Unknown]
